FAERS Safety Report 7739599-6 (Version None)
Quarter: 2011Q3

REPORT INFORMATION
  Report Type: 
  Country: None (occurrence: None)
  Receive Date: 20110909
  Receipt Date: 20110905
  Transmission Date: 20111222
  Serious: Yes (Hospitalization)
  Sender: FDA-Public Use
  Company Number: FR-PFIZER INC-2011206867

PATIENT
  Age: 74 Year
  Sex: Male

DRUGS (16)
  1. FLAGYL [Suspect]
     Indication: NECROTISING FASCIITIS
     Dosage: 500 MG, 3X/DAY
     Route: 048
     Dates: start: 20110812
  2. ATARAX [Concomitant]
  3. NEBIVOLOL [Concomitant]
     Dosage: UNK
  4. CLINDAMYCIN HCL [Suspect]
     Indication: STREPTOCOCCAL BACTERAEMIA
     Dosage: UNK
     Route: 048
     Dates: start: 20110812
  5. NEXIUM [Concomitant]
     Dosage: UNK
  6. ALPRAZOLAM [Concomitant]
     Dosage: UNK
  7. LYRICA [Suspect]
     Indication: NEURALGIA
     Dosage: 0.5 DF, 1X/DAY
     Route: 048
     Dates: start: 20110811
  8. INSULIN [Concomitant]
  9. AMLODIPINE BESYLATE [Concomitant]
     Dosage: 5 MG, 1X/DAY
  10. PIPERACILLIN AND TAZOBACTAM [Suspect]
     Indication: STREPTOCOCCAL BACTERAEMIA
     Dosage: 4 G, 3X/DAY
     Route: 042
     Dates: start: 20110812
  11. IMOVANE [Concomitant]
     Dosage: 7.5 MG, 1X/DAY
  12. CRESTOR [Concomitant]
     Dosage: UNK
  13. VALSARTAN [Concomitant]
     Dosage: UNK
  14. FUROSEMIDE [Concomitant]
     Dosage: 40 MG, 1X/DAY
  15. XYZAL [Concomitant]
     Dosage: UNK
  16. MEDROL [Concomitant]
     Dosage: 16 MG, 1X/DAY

REACTIONS (1)
  - HYPOKALAEMIA [None]
